FAERS Safety Report 17063212 (Version 3)
Quarter: 2019Q4

REPORT INFORMATION
  Report Type: Report from Study
  Country: US (occurrence: US)
  Receive Date: 20191122
  Receipt Date: 20191209
  Transmission Date: 20200122
  Serious: Yes (Other)
  Sender: FDA-Public Use
  Company Number: US-AMGEN INC.-USASL2019191303

PATIENT
  Age: 64 Year
  Sex: Female
  Weight: 63.95 kg

DRUGS (10)
  1. PROMETHAZINE HCL [Concomitant]
     Active Substance: PROMETHAZINE HYDROCHLORIDE
     Indication: HEADACHE
     Dosage: 25 MILLIGRAM, AS NECESSARY
     Route: 048
     Dates: start: 20191025
  2. CLONAZEPAM. [Concomitant]
     Active Substance: CLONAZEPAM
     Dosage: 1 MILLIGRAM
     Route: 048
     Dates: start: 20191025
  3. KETOROLAC TROMETHAMINE. [Concomitant]
     Active Substance: KETOROLAC TROMETHAMINE
     Dosage: 10 MILLIGRAM, AS NECESSARY
     Route: 048
     Dates: start: 20191025
  4. OMEGA 3 [FISH OIL] [Concomitant]
     Active Substance: FISH OIL
     Dosage: 1200 MILLIGRAM, QD
     Route: 048
     Dates: start: 20191025
  5. RIZATRIPTAN. [Concomitant]
     Active Substance: RIZATRIPTAN
     Indication: MIGRAINE
     Dosage: 10 MILLIGRAM, AS NECESSARY (EVERY TWO HOUR)
     Route: 048
     Dates: start: 20191025
  6. CYCLOBENZAPRINE HCL [Concomitant]
     Active Substance: CYCLOBENZAPRINE HYDROCHLORIDE
     Dosage: 10 MILLIGRAM, QHS (AS NEEDED)
     Route: 048
     Dates: start: 20191025
  7. AIMOVIG [Suspect]
     Active Substance: ERENUMAB-AOOE
     Indication: MIGRAINE PROPHYLAXIS
     Dosage: 70 MILLIGRAM, QMO
     Route: 065
     Dates: start: 20191025
  8. MAGNESIUM CITRATE. [Suspect]
     Active Substance: MAGNESIUM CITRATE
     Indication: PRODUCT USED FOR UNKNOWN INDICATION
     Dosage: UNK
     Route: 065
  9. HYDROXYZINE HCL [Concomitant]
     Active Substance: HYDROXYZINE HYDROCHLORIDE
     Indication: HEADACHE
     Dosage: 25 MILLIGRAM (ONE EVERY SIX HOUR AS NEEDED)
     Route: 048
     Dates: start: 20191025
  10. CALCIUM [Concomitant]
     Active Substance: CALCIUM
     Dosage: 600 MILLIGRAM
     Route: 048
     Dates: start: 20191025

REACTIONS (9)
  - Lip blister [Not Recovered/Not Resolved]
  - Oedema mucosal [Unknown]
  - Lip swelling [Recovering/Resolving]
  - Tongue discomfort [Not Recovered/Not Resolved]
  - Swelling face [Recovering/Resolving]
  - Peripheral swelling [Not Recovered/Not Resolved]
  - Eye swelling [Not Recovered/Not Resolved]
  - Swollen tongue [Recovering/Resolving]
  - Paraesthesia [Not Recovered/Not Resolved]

NARRATIVE: CASE EVENT DATE: 2019
